FAERS Safety Report 9090970 (Version 1)
Quarter: 2013Q1

REPORT INFORMATION
  Report Type: Report from Study
  Country: GB (occurrence: GB)
  Receive Date: 20130131
  Receipt Date: 20130131
  Transmission Date: 20140127
  Serious: Yes (Hospitalization, Other)
  Sender: FDA-Public Use
  Company Number: GB-ROCHE-1170379

PATIENT
  Age: 70 Year
  Sex: Female
  Weight: 62 kg

DRUGS (12)
  1. TOCILIZUMAB [Suspect]
     Indication: RHEUMATOID ARTHRITIS
     Dosage: LAST DOSE PRIOR TO SAE: 19 JAN 2012
     Route: 065
  2. METHOTREXATE [Concomitant]
     Route: 030
  3. CO-AMILOZIDE [Concomitant]
     Dosage: 5/50
     Route: 048
  4. FOLIC ACID [Concomitant]
     Route: 048
  5. AMITRIPTYLINE [Concomitant]
     Route: 048
  6. HYDROXOCOBALAMIN [Concomitant]
     Route: 030
  7. QUININE [Concomitant]
     Route: 048
  8. SIMVASTATIN [Concomitant]
     Route: 048
  9. SENNA [Concomitant]
     Dosage: 1-3 DF
     Route: 048
  10. LACTULOSE [Concomitant]
     Route: 048
  11. OMEPRAZOLE [Concomitant]
     Route: 048
  12. PARACETAMOL [Concomitant]
     Route: 048

REACTIONS (3)
  - Postoperative wound infection [Unknown]
  - Small intestinal obstruction [Unknown]
  - Adhesion [Unknown]
